FAERS Safety Report 15681289 (Version 1)
Quarter: 2018Q4

REPORT INFORMATION
  Report Type: Spontaneous
  Country: US (occurrence: US)
  Receive Date: 20181120
  Receipt Date: 20181120
  Transmission Date: 20190205
  Serious: Yes (Other)
  Sender: FDA-Public Use
  Company Number: None

PATIENT
  Age: 53 Year
  Sex: Male
  Weight: 113.85 kg

DRUGS (10)
  1. VALACYCLOVIR [Concomitant]
     Active Substance: VALACYCLOVIR HYDROCHLORIDE
     Dates: start: 20180924
  2. CHLORHEXIDINE [Concomitant]
     Active Substance: CHLORHEXIDINE
     Dates: start: 20180924, end: 20181008
  3. LORAZEPAM. [Concomitant]
     Active Substance: LORAZEPAM
     Dates: start: 20180924, end: 20181005
  4. AXICABTAGENE CILOLEUCEL [Suspect]
     Active Substance: AXICABTAGENE CILOLEUCEL
     Indication: DIFFUSE LARGE B-CELL LYMPHOMA
     Dosage: ?          OTHER FREQUENCY:ONCE;?
     Route: 041
     Dates: start: 20180924, end: 20180924
  5. DILTIAZEM. [Concomitant]
     Active Substance: DILTIAZEM
     Dates: start: 20180930
  6. ZOLPIDEM [Concomitant]
     Active Substance: ZOLPIDEM\ZOLPIDEM TARTRATE
     Dates: start: 20180926, end: 20181007
  7. TBO-FILGRASTIM [Concomitant]
     Active Substance: TBO-FILGRASTIM
     Dates: start: 20181003, end: 20181003
  8. OXYCODONE IMMEDIATE RELEASE [Concomitant]
     Active Substance: OXYCODONE
     Dates: start: 20181001, end: 20181008
  9. SUPERSATURATED CALCIUM PHOSPHATE RINSE [Concomitant]
     Dates: start: 20180924, end: 20181008
  10. FLUCONAZOLE. [Concomitant]
     Active Substance: FLUCONAZOLE
     Dates: start: 20180924, end: 20181008

REACTIONS (1)
  - Cytokine release syndrome [None]

NARRATIVE: CASE EVENT DATE: 20181003
